FAERS Safety Report 7520724-7 (Version None)
Quarter: 2011Q2

REPORT INFORMATION
  Report Type: 
  Country: None (occurrence: None)
  Receive Date: 20110603
  Receipt Date: 20101130
  Transmission Date: 20111010
  Serious: Yes (Death, Hospitalization, Other)
  Sender: FDA-Public Use
  Company Number: JP-BAYER-200911176BYL

PATIENT
  Age: 54 Year
  Sex: Female

DRUGS (18)
  1. GABAPENTIN [Concomitant]
     Dosage: 800 MG, QD
     Dates: start: 20090828
  2. SORAFENIB (RAF KINASE INHIBITOR) [Suspect]
     Dosage: 400 MG, QOD
     Route: 048
     Dates: start: 20090825, end: 20090902
  3. SORAFENIB (RAF KINASE INHIBITOR) [Suspect]
     Dosage: 400 MG, QD
     Route: 048
     Dates: start: 20090903, end: 20090917
  4. LOXONIN [Concomitant]
     Dosage: 180 MG (DAILY DOSE), , ORAL
     Route: 048
     Dates: start: 20090321, end: 20090328
  5. MUCOSTA [Concomitant]
     Dosage: 300 MG (DAILY DOSE), , ORAL
     Route: 048
     Dates: start: 20090321, end: 20090328
  6. DIHYDROCODEINE PHOSPHATE [Concomitant]
     Dosage: 30 MG (DAILY DOSE), , ORAL
     Route: 048
     Dates: start: 20090407
  7. SORAFENIB (RAF KINASE INHIBITOR) [Suspect]
     Indication: RENAL CELL CARCINOMA
     Dosage: 800 MG, QD
     Dates: start: 20090317, end: 20090322
  8. SORAFENIB (RAF KINASE INHIBITOR) [Suspect]
     Dosage: 400 MG, QOD
     Route: 048
     Dates: start: 20090918, end: 20090928
  9. ASVERIN [Concomitant]
     Dosage: 60 MG (DAILY DOSE), , ORAL
     Route: 048
     Dates: start: 20090330, end: 20090404
  10. CODEINE SULFATE [Concomitant]
     Dosage: 20 MG (DAILY DOSE), , ORAL
     Route: 048
     Dates: start: 20090404
  11. SORAFENIB (RAF KINASE INHIBITOR) [Suspect]
     Dosage: 400 MG, QD
     Route: 048
     Dates: start: 20091105, end: 20100129
  12. SORAFENIB (RAF KINASE INHIBITOR) [Suspect]
     Dosage: 400 MG, QD
     Route: 048
     Dates: start: 20100205, end: 20100216
  13. DEPAKENE [Suspect]
     Indication: EPILEPSY
     Route: 048
     Dates: start: 20090626, end: 20090828
  14. DICLOFENAC SODIUM [Concomitant]
     Dosage: 25 MG (DAILY DOSE), , ORAL
     Route: 048
     Dates: start: 20090321, end: 20090328
  15. SORAFENIB (RAF KINASE INHIBITOR) [Suspect]
     Dosage: 400 MG, QD
     Route: 048
     Dates: start: 20090323, end: 20090325
  16. DEPAKENE [Suspect]
  17. VOLTAREN [Concomitant]
     Dosage: 25 MG (DAILY DOSE), , ORAL
     Route: 048
     Dates: start: 20090321, end: 20090328
  18. SORAFENIB (RAF KINASE INHIBITOR) [Suspect]
     Dosage: 400 MG, QD
     Route: 048
     Dates: start: 20090425, end: 20090805

REACTIONS (11)
  - NEOPLASM PROGRESSION [None]
  - PALMAR-PLANTAR ERYTHRODYSAESTHESIA SYNDROME [None]
  - PLATELET COUNT DECREASED [None]
  - METASTASES TO CENTRAL NERVOUS SYSTEM [None]
  - HEPATIC FUNCTION ABNORMAL [None]
  - EPILEPSY [None]
  - METASTASES TO ADRENALS [None]
  - METASTASES TO LUNG [None]
  - CEREBRAL HAEMORRHAGE [None]
  - HYPOGLYCAEMIA [None]
  - HYPOTHYROIDISM [None]
